FAERS Safety Report 5821580-5 (Version None)
Quarter: 2008Q3

REPORT INFORMATION
  Report Type: 
  Country: None (occurrence: None)
  Receive Date: 20080724
  Receipt Date: 20080718
  Transmission Date: 20090109
  Serious: Yes (Other)
  Sender: FDA-Public Use
  Company Number: PHEH2008US04946

PATIENT
  Sex: Female

DRUGS (1)
  1. TEKTURNA [Suspect]
     Dosage: 150 MG, QD
     Dates: start: 20080529

REACTIONS (6)
  - AMNESIA [None]
  - CHEST PAIN [None]
  - CONFUSIONAL STATE [None]
  - DYSARTHRIA [None]
  - SWELLING [None]
  - SWELLING FACE [None]
